FAERS Safety Report 24033034 (Version 1)
Quarter: 2024Q3

REPORT INFORMATION
  Report Type: Spontaneous
  Country: US (occurrence: US)
  Receive Date: 20240701
  Receipt Date: 20240701
  Transmission Date: 20241016
  Serious: No
  Sender: SANOFI AVENTIS
  Company Number: US-SANOFI-02102395

PATIENT
  Age: 60 Year
  Sex: Male

DRUGS (2)
  1. DUPIXENT [Suspect]
     Active Substance: DUPILUMAB
     Indication: Eczema
     Dosage: UNK UNK, 1X
  2. DUPIXENT [Suspect]
     Active Substance: DUPILUMAB
     Indication: Dry skin
     Dosage: 300 MG, QOW

REACTIONS (1)
  - Product use in unapproved indication [Unknown]
